FAERS Safety Report 8355012-2 (Version None)
Quarter: 2012Q2

REPORT INFORMATION
  Report Type: 
  Country: None (occurrence: None)
  Receive Date: 20120511
  Receipt Date: 20120508
  Transmission Date: 20120825
  Serious: Yes (Disabling, Other)
  Sender: FDA-Public Use
  Company Number: US-PFIZER INC-2012112523

PATIENT
  Sex: Female
  Weight: 58.957 kg

DRUGS (2)
  1. AMLODIPINE [Concomitant]
     Indication: BLOOD PRESSURE ABNORMAL
     Dosage: 10 MG, DAILY
  2. LIPITOR [Suspect]
     Indication: LOW DENSITY LIPOPROTEIN INCREASED
     Dosage: BY SPLITTING10MG TABLET, DAILY
     Route: 048
     Dates: start: 20120317, end: 20120323

REACTIONS (2)
  - MOBILITY DECREASED [None]
  - ASTHENIA [None]
